FAERS Safety Report 7487335-3 (Version None)
Quarter: 2011Q2

REPORT INFORMATION
  Report Type: 
  Country: None (occurrence: None)
  Receive Date: 20110510
  Receipt Date: 20110426
  Transmission Date: 20111010
  Serious: Yes (Other)
  Sender: FDA-Public Use
  Company Number: 032083

PATIENT
  Sex: Female

DRUGS (2)
  1. TRILEPTAL [Suspect]
     Indication: EPILEPSY
     Dosage: (600 MG BID ORAL) ; (ORAL)
     Route: 048
     Dates: start: 20100501, end: 20100601
  2. KEPPRA [Suspect]
     Indication: EPILEPSY
     Dosage: (250 MG BID ORAL) ; (ORAL)
     Route: 048
     Dates: start: 20100501, end: 20100601

REACTIONS (4)
  - CONFUSIONAL STATE [None]
  - PSYCHOMOTOR SKILLS IMPAIRED [None]
  - GRAND MAL CONVULSION [None]
  - TREATMENT NONCOMPLIANCE [None]
